FAERS Safety Report 7117523-7 (Version None)
Quarter: 2010Q4

REPORT INFORMATION
  Report Type: 
  Country: None (occurrence: None)
  Receive Date: 20101122
  Receipt Date: 20100817
  Transmission Date: 20110411
  Serious: Yes (Hospitalization)
  Sender: FDA-Public Use
  Company Number: JP-AMGEN-KDC437219

PATIENT

DRUGS (4)
  1. PANITUMUMAB [Suspect]
     Indication: COLORECTAL CANCER
     Dosage: 7 MG/KG, Q2WK
     Route: 041
     Dates: start: 20100622
  2. PANITUMUMAB [Suspect]
     Dosage: 6 MG/KG, Q2WK
     Route: 041
     Dates: start: 20100720
  3. IANSOPRAZOLE [Concomitant]
     Dosage: UNK UNK, UNK
     Route: 048
  4. TAKEPRON [Concomitant]
     Route: 048

REACTIONS (3)
  - CEREBRAL INFARCTION [None]
  - HYPOMAGNESAEMIA [None]
  - THROMBOTIC STROKE [None]
